FAERS Safety Report 9611840 (Version 3)
Quarter: 2013Q4

REPORT INFORMATION
  Report Type: Report from Study
  Country: US (occurrence: US)
  Receive Date: 20131010
  Receipt Date: 20131226
  Transmission Date: 20140711
  Serious: Yes (Life-Threatening, Hospitalization)
  Sender: FDA-Public Use
  Company Number: PHHO2013US013039

PATIENT
  Age: 22 Year
  Sex: Male

DRUGS (5)
  1. AFINITOR [Suspect]
     Indication: HEPATOCELLULAR CARCINOMA
     Dosage: 7.5 MG, QD
     Route: 048
     Dates: start: 20130924, end: 20130926
  2. LEUPROLIDE ACETATE [Suspect]
     Indication: HEPATOCELLULAR CARCINOMA
     Dosage: 7.5 MG, UNK
     Route: 030
     Dates: start: 20130924, end: 20130926
  3. ACETAMINOPHEN [Concomitant]
     Dosage: 325 MG, UNK
     Dates: start: 20080101
  4. ONDANSETRON [Concomitant]
     Dosage: 4 MG, UNK
     Dates: start: 20100101
  5. RANITIDINE [Concomitant]
     Dosage: 150 MG, UNK
     Dates: start: 20090101

REACTIONS (1)
  - Mental status changes [Recovered/Resolved]
